FAERS Safety Report 8266450-0 (Version None)
Quarter: 2012Q2

REPORT INFORMATION
  Report Type: 
  Country: None (occurrence: None)
  Receive Date: 20120406
  Receipt Date: 20120330
  Transmission Date: 20120825
  Serious: Yes (Congenital Anomaly, Other)
  Sender: FDA-Public Use
  Company Number: JP-MERCK-1203USA02505B1

PATIENT
  Age: 1 Day
  Weight: 2 kg

DRUGS (1)
  1. PEPCID [Suspect]
     Indication: FOETAL EXPOSURE DURING PREGNANCY
     Route: 064

REACTIONS (2)
  - NEONATAL ASPHYXIA [None]
  - FOETAL EXPOSURE DURING PREGNANCY [None]
